FAERS Safety Report 10156052 (Version 3)
Quarter: 2015Q2

REPORT INFORMATION
  Report Type: Report from Study
  Country: CA (occurrence: CA)
  Receive Date: 20140506
  Receipt Date: 20150403
  Transmission Date: 20150821
  Serious: Yes (Life-Threatening, Hospitalization, Other)
  Sender: FDA-Public Use
  Company Number: CA-ABBVIE-14P-028-1232846-00

PATIENT
  Age: 55 Year
  Sex: Male
  Weight: 99.88 kg

DRUGS (1)
  1. HUMIRA [Suspect]
     Active Substance: ADALIMUMAB
     Indication: CROHN^S DISEASE
     Route: 058
     Dates: start: 20110420, end: 201404

REACTIONS (8)
  - Gait disturbance [Recovering/Resolving]
  - Feeling abnormal [Not Recovered/Not Resolved]
  - Volvulus [Recovering/Resolving]
  - Vomiting [Unknown]
  - Postoperative hernia [Not Recovered/Not Resolved]
  - Retching [Not Recovered/Not Resolved]
  - Gastric perforation [Recovering/Resolving]
  - Therapeutic response unexpected [Recovering/Resolving]

NARRATIVE: CASE EVENT DATE: 20140430
